FAERS Safety Report 6709507-5 (Version None)
Quarter: 2010Q2

REPORT INFORMATION
  Report Type: 
  Country: None (occurrence: None)
  Receive Date: 20100504
  Receipt Date: 20100422
  Transmission Date: 20101027
  Serious: Yes (Other)
  Sender: FDA-Public Use
  Company Number: CA-PFIZER INC-2010039889

PATIENT
  Age: 27 Year
  Sex: Female

DRUGS (4)
  1. CHAMPIX [Suspect]
     Dosage: 1 MG, UNK
     Dates: start: 20100301
  2. ZOLOFT [Concomitant]
     Indication: DEPRESSION
     Dosage: UNK
  3. ZOLOFT [Concomitant]
     Indication: ANXIETY
  4. ALESSE [Concomitant]
     Indication: CONTRACEPTION
     Dosage: UNK
     Route: 048

REACTIONS (4)
  - AGITATION [None]
  - FATIGUE [None]
  - MOOD SWINGS [None]
  - STREPTOCOCCAL INFECTION [None]
